FAERS Safety Report 5205297-6 (Version None)
Quarter: 2007Q1

REPORT INFORMATION
  Report Type: 
  Country: None (occurrence: None)
  Receive Date: 20070110
  Receipt Date: 20070103
  Transmission Date: 20070707
  Serious: Yes (Other)
  Sender: FDA-Public Use
  Company Number: US-PFIZER INC-2007002401

PATIENT
  Sex: Female
  Weight: 57.2 kg

DRUGS (1)
  1. DETROL LA [Suspect]
     Indication: HYPERTONIC BLADDER
     Dates: start: 20060701, end: 20060701

REACTIONS (2)
  - THROMBOSIS [None]
  - URTICARIA [None]
